FAERS Safety Report 12834510 (Version 2)
Quarter: 2016Q4

REPORT INFORMATION
  Report Type: Spontaneous
  Country: PE (occurrence: PE)
  Receive Date: 20161010
  Receipt Date: 20161228
  Transmission Date: 20170207
  Serious: Yes (Other)
  Sender: FDA-Public Use
  Company Number: PE-PFIZER INC-2016464474

PATIENT
  Age: 57 Year
  Sex: Female

DRUGS (1)
  1. ZELDOX [Suspect]
     Active Substance: ZIPRASIDONE
     Dosage: 60 MG, DAILY

REACTIONS (2)
  - Osteoarthritis [Recovered/Resolved]
  - Abasia [Recovered/Resolved]
